FAERS Safety Report 7156476-2 (Version None)
Quarter: 2010Q4

REPORT INFORMATION
  Report Type: 
  Country: None (occurrence: None)
  Receive Date: 20101214
  Receipt Date: 20091116
  Transmission Date: 20110411
  Serious: No
  Sender: FDA-Public Use
  Company Number: US-ASTRAZENECA-2009SE26909

PATIENT
  Age: 78 Year
  Sex: Female
  Weight: 58.5 kg

DRUGS (4)
  1. CRESTOR [Suspect]
     Route: 048
  2. DIOVAN [Concomitant]
  3. ASPIRIN [Concomitant]
  4. FOLICA ACID [Concomitant]

REACTIONS (3)
  - DYSPEPSIA [None]
  - HEADACHE [None]
  - MYALGIA [None]
